FAERS Safety Report 10826065 (Version 3)
Quarter: 2016Q1

REPORT INFORMATION
  Report Type: Report from Study
  Country: US (occurrence: US)
  Receive Date: 20150219
  Receipt Date: 20160201
  Transmission Date: 20160525
  Serious: No
  Sender: FDA-Public Use
  Company Number: US-ABBVIE-14K-163-1316057-00

PATIENT
  Age: 50 Year
  Sex: Female
  Weight: 61.29 kg

DRUGS (8)
  1. HUMIRA [Suspect]
     Active Substance: ADALIMUMAB
     Indication: PSORIASIS
     Route: 065
     Dates: start: 20141009, end: 20141009
  2. PATANOL [Concomitant]
     Active Substance: OLOPATADINE HYDROCHLORIDE
     Indication: PRODUCT USED FOR UNKNOWN INDICATION
  3. HUMIRA [Suspect]
     Active Substance: ADALIMUMAB
     Indication: PSORIASIS
     Route: 065
     Dates: start: 20141016
  4. LORAZEPAM. [Concomitant]
     Active Substance: LORAZEPAM
     Indication: PRODUCT USED FOR UNKNOWN INDICATION
  5. ALBUTEROL. [Concomitant]
     Active Substance: ALBUTEROL
     Indication: PANIC ATTACK
  6. OCUVITE [Concomitant]
     Active Substance: VITAMINS
     Indication: PRODUCT USED FOR UNKNOWN INDICATION
  7. PREVACID [Concomitant]
     Active Substance: LANSOPRAZOLE
     Indication: PRODUCT USED FOR UNKNOWN INDICATION
  8. PREDNISONE. [Concomitant]
     Active Substance: PREDNISONE
     Indication: PRODUCT USED FOR UNKNOWN INDICATION

REACTIONS (14)
  - Gastrointestinal disorder [Unknown]
  - Injection site rash [Recovered/Resolved]
  - Wrong technique in product usage process [Unknown]
  - Injection site erythema [Recovered/Resolved]
  - Nausea [Not Recovered/Not Resolved]
  - Injection site bruising [Not Recovered/Not Resolved]
  - Headache [Not Recovered/Not Resolved]
  - Incorrect dose administered [Unknown]
  - Psoriasis [Not Recovered/Not Resolved]
  - Fatigue [Not Recovered/Not Resolved]
  - Disorientation [Not Recovered/Not Resolved]
  - Therapeutic response unexpected [Unknown]
  - Injection site pain [Not Recovered/Not Resolved]
  - Injection site swelling [Recovered/Resolved]

NARRATIVE: CASE EVENT DATE: 2014
